FAERS Safety Report 20321189 (Version 1)
Quarter: 2022Q1

REPORT INFORMATION
  Report Type: Spontaneous
  Country: US (occurrence: US)
  Receive Date: 20220111
  Receipt Date: 20220111
  Transmission Date: 20220423
  Serious: Yes (Death, Hospitalization)
  Sender: FDA-Public Use
  Company Number: US-BAYER-2022A001869

PATIENT
  Age: 74 Year
  Sex: Female

DRUGS (13)
  1. ASPIRIN [Suspect]
     Active Substance: ASPIRIN
     Route: 048
  2. HYDROMORPHONE [Suspect]
     Active Substance: HYDROMORPHONE
  3. ACETAMINOPHEN [Suspect]
     Active Substance: ACETAMINOPHEN
  4. ZOLPIDEM [Suspect]
     Active Substance: ZOLPIDEM TARTRATE
  5. SERTRALINE [Suspect]
     Active Substance: SERTRALINE HYDROCHLORIDE
  6. QUETIAPINE [Suspect]
     Active Substance: QUETIAPINE
  7. METHOTREXATE [Suspect]
     Active Substance: METHOTREXATE
  8. METHOCARBAMOL [Suspect]
     Active Substance: METHOCARBAMOL
  9. GABAPENTIN [Suspect]
     Active Substance: GABAPENTIN
  10. DULOXETINE [Suspect]
     Active Substance: DULOXETINE
  11. BUPRENORPHINE\NALOXONE [Suspect]
     Active Substance: BUPRENORPHINE\NALOXONE
  12. APIXABAN [Suspect]
     Active Substance: APIXABAN
  13. ALPRAZOLAM [Suspect]
     Active Substance: ALPRAZOLAM

REACTIONS (2)
  - Intentional product use issue [Fatal]
  - Toxicity to various agents [Fatal]
